FAERS Safety Report 10429265 (Version 1)
Quarter: 2014Q3

REPORT INFORMATION
  Report Type: Spontaneous
  Country: US (occurrence: None)
  Receive Date: 20140902
  Receipt Date: 20140902
  Transmission Date: 20150326
  Serious: Yes (Hospitalization)
  Sender: FDA-Public Use
  Company Number: None

PATIENT
  Age: 61 Year
  Sex: Male

DRUGS (11)
  1. LISINOPRIL. [Concomitant]
     Active Substance: LISINOPRIL
  2. MAGNESIUM SULFATE [Concomitant]
     Active Substance: MAGNESIUM SULFATE
  3. ATORVASTATIN [Concomitant]
     Active Substance: ATORVASTATIN
  4. METOPROLOL [Concomitant]
     Active Substance: METOPROLOL
  5. PERCOCET [Concomitant]
     Active Substance: ACETAMINOPHEN\OXYCODONE HYDROCHLORIDE
  6. SULFAMETHOXAZOLE/TRIMETHOPRIM [Suspect]
     Active Substance: SULFAMETHOXAZOLE\TRIMETHOPRIM
     Indication: WOUND INFECTION
     Route: 048
     Dates: start: 20140706, end: 20140709
  7. HEPARIN [Concomitant]
     Active Substance: HEPARIN SODIUM
  8. ASA [Suspect]
     Active Substance: ASPIRIN
     Dosage: 81 MG,DAILY, PO.
  9. MORPHINE [Concomitant]
     Active Substance: MORPHINE
  10. DEXTROSE. [Concomitant]
     Active Substance: DEXTROSE
  11. INSULIN ASPART [Concomitant]
     Active Substance: INSULIN ASPART

REACTIONS (1)
  - Blood potassium increased [None]

NARRATIVE: CASE EVENT DATE: 20140709
